FAERS Safety Report 5271235-3 (Version None)
Quarter: 2007Q1

REPORT INFORMATION
  Report Type: 
  Country: None (occurrence: None)
  Receive Date: 20070315
  Receipt Date: 20070305
  Transmission Date: 20070707
  Serious: Yes (Death)
  Sender: FDA-Public Use
  Company Number: 2007-00097

PATIENT
  Age: 72 Year
  Sex: Male

DRUGS (14)
  1. VELCADE [Suspect]
     Indication: MULTIPLE MYELOMA
     Dosage: 1.30 MG/M2
     Dates: start: 20070109, end: 20070113
  2. DEXAMETHASONE [Concomitant]
  3. ISOSORBIDE DINITRATE [Concomitant]
  4. FAMOTIDINE [Concomitant]
  5. BAKTAR (SULFAMETHOXAZOLE, TRIMETHOPRIM) [Concomitant]
  6. ALLOPURINOL [Concomitant]
  7. SODIUM BICARBONATE [Concomitant]
  8. LASIX [Concomitant]
  9. SOLU-CORTEF [Concomitant]
  10. MAXIPIME [Concomitant]
  11. PRODIF [Concomitant]
  12. SOLU-MEDROL [Concomitant]
  13. ENSURE OSMOLITE (SUCROSE, CASEIN, STARCH MAIZE, SOYA OIL, CORN OIL, LE [Concomitant]
  14. PLATELETS [Concomitant]

REACTIONS (10)
  - CARDIAC FAILURE [None]
  - CEREBRAL INFARCTION [None]
  - CONCOMITANT DISEASE PROGRESSION [None]
  - DEHYDRATION [None]
  - HYPERCALCAEMIA [None]
  - INTERSTITIAL LUNG DISEASE [None]
  - MYOCARDIAL INFARCTION [None]
  - NEOPLASM PROGRESSION [None]
  - RESPIRATORY FAILURE [None]
  - TACHYCARDIA [None]
